FAERS Safety Report 8246282-X (Version None)
Quarter: 2012Q1

REPORT INFORMATION
  Report Type: 
  Country: None (occurrence: None)
  Receive Date: 20120330
  Receipt Date: 20120327
  Transmission Date: 20120608
  Serious: Yes (Death)
  Sender: FDA-Public Use
  Company Number: US-CELGENEUS-163-21880-12033070

PATIENT
  Sex: Male

DRUGS (16)
  1. DILAUDID [Concomitant]
     Route: 065
  2. VITAMIN B-12 [Concomitant]
     Route: 065
  3. VITAMIN E [Concomitant]
     Route: 065
  4. THALOMID [Suspect]
     Indication: MULTIPLE MYELOMA
     Dosage: 50 MILLIGRAM
     Route: 048
     Dates: start: 20100813
  5. LORAZEPAM [Concomitant]
     Route: 065
  6. PHOSPHATE LAX [Concomitant]
     Route: 065
  7. GABAPENTIN [Concomitant]
     Route: 065
  8. LIDOCAINE [Concomitant]
     Route: 065
  9. OLANZAPINE [Concomitant]
     Route: 065
  10. DEXAMETHASONE [Concomitant]
     Route: 065
  11. REVLIMID [Suspect]
     Dosage: 5 MILLIGRAM
     Route: 048
     Dates: start: 20111125
  12. THALOMID [Suspect]
     Dosage: 100 MILLIGRAM
     Route: 048
     Dates: start: 20101101
  13. ACYCLOVIR [Concomitant]
     Route: 065
  14. REVLIMID [Suspect]
     Indication: MULTIPLE MYELOMA
     Dosage: 25 MILLIGRAM
     Route: 048
     Dates: start: 20080407, end: 20080610
  15. MIRTAZAPINE [Concomitant]
     Route: 065
  16. NEPHRO VITE [Concomitant]
     Route: 065

REACTIONS (1)
  - DEATH [None]
